FAERS Safety Report 7199341-7 (Version None)
Quarter: 2010Q4

REPORT INFORMATION
  Report Type: 
  Country: None (occurrence: None)
  Receive Date: 20101228
  Receipt Date: 20101214
  Transmission Date: 20110411
  Serious: Yes (Hospitalization)
  Sender: FDA-Public Use
  Company Number: JP-SANOFI-AVENTIS-2010SA077934

PATIENT
  Age: 54 Year
  Sex: Female
  Weight: 43 kg

DRUGS (31)
  1. FLUDARABINE PHOSPHATE [Suspect]
     Route: 048
     Dates: start: 20100314, end: 20100317
  2. ANTI-THYMOCYTE GLOBULIN NOS [Suspect]
     Route: 042
     Dates: start: 20100312, end: 20100313
  3. MICAFUNGIN SODIUM [Concomitant]
     Dates: start: 20100312, end: 20100329
  4. LEVOFLOXACIN [Concomitant]
     Dates: start: 20100306, end: 20100422
  5. URSODEOXYCHOLIC ACID [Concomitant]
     Dates: start: 20100101, end: 20100620
  6. REBAMIPIDE [Concomitant]
     Dates: start: 20100312
  7. MESNA [Concomitant]
     Dates: start: 20100314, end: 20100317
  8. GRANISETRON HYDROCHLORIDE [Concomitant]
     Dates: start: 20100310, end: 20100317
  9. PREDNISOLONE [Concomitant]
     Dates: start: 20100314, end: 20100317
  10. CYCLOPHOSPHAMIDE [Concomitant]
     Dates: start: 20100314, end: 20100317
  11. ACYCLOVIR [Concomitant]
     Dates: start: 20100312, end: 20100625
  12. TACROLIMUS [Concomitant]
     Dates: start: 20100318
  13. METHOTREXATE [Concomitant]
     Dates: start: 20100320, end: 20100330
  14. HYDROXYZINE HCL [Concomitant]
     Dates: start: 20100316, end: 20100319
  15. DILTIAZEM HYDROCHLORIDE [Concomitant]
     Dates: start: 20100319, end: 20100322
  16. NICARDIPINE HYDROCHLORIDE [Concomitant]
     Dates: start: 20100322, end: 20100402
  17. AMLODIPINE BESYLATE [Concomitant]
     Dates: start: 20100330
  18. MAGNESIUM SULFATE [Concomitant]
     Dates: start: 20100322, end: 20100430
  19. INSULIN HUMAN [Concomitant]
     Dates: start: 20100322, end: 20100406
  20. FILGRASTIM [Concomitant]
     Dates: start: 20100326, end: 20100405
  21. CANDESARTAN CILEXETIL [Concomitant]
     Dates: start: 20100402, end: 20100415
  22. VOGLIBOSE [Concomitant]
     Dates: start: 20090408
  23. RABEPRAZOLE SODIUM [Concomitant]
     Dates: start: 20100322
  24. PENTAMIDINE ISETHIONATE [Concomitant]
     Dates: start: 20100501, end: 20100501
  25. SULFAMETHOXAZOLE AND TRIMETHOPRIM [Concomitant]
     Dates: start: 20100607
  26. RED BLOOD CELLS, CONCENTRATED [Concomitant]
     Dates: start: 20090224, end: 20100405
  27. PLATELETS [Concomitant]
     Dates: start: 20090222, end: 20100414
  28. RANITIDINE HYDROCHLORIDE [Concomitant]
     Dates: start: 20100312, end: 20100312
  29. ACETAMINOPHEN [Concomitant]
     Dates: start: 20100312, end: 20100421
  30. METHYLPREDNISOLONE SODIUM SUCCINATE [Concomitant]
  31. CHLORPHENIRAMINE MALEATE [Concomitant]
     Dates: start: 20100312, end: 20100312

REACTIONS (1)
  - LIVER DISORDER [None]
